FAERS Safety Report 10007058 (Version 2)
Quarter: 2014Q1

REPORT INFORMATION
  Report Type: Spontaneous
  Country: US (occurrence: US)
  Receive Date: 20140313
  Receipt Date: 20140313
  Transmission Date: 20141002
  Serious: No
  Sender: FDA-Public Use
  Company Number: US-GILEAD-2013-0068918

PATIENT
  Age: 69 Year
  Sex: Female

DRUGS (3)
  1. LETAIRIS [Suspect]
     Indication: PRODUCT USED FOR UNKNOWN INDICATION
     Dosage: 10 MG, UNK
     Route: 048
     Dates: start: 20110707
  2. METOPROLOL [Concomitant]
     Dosage: 25 MG, QD
  3. ISOSORBIDE [Concomitant]
     Dosage: 30 MG, QD

REACTIONS (3)
  - Hypotension [Unknown]
  - Fluid retention [Unknown]
  - Dyspnoea [Unknown]
